FAERS Safety Report 15159656 (Version 2)
Quarter: 2018Q3

REPORT INFORMATION
  Report Type: Spontaneous
  Country: JP (occurrence: JP)
  Receive Date: 20180718
  Receipt Date: 20180821
  Transmission Date: 20181010
  Serious: Yes (Death, Other)
  Sender: FDA-Public Use
  Company Number: JP-JNJFOC-20180720780

PATIENT
  Age: 93 Year
  Sex: Female
  Weight: 38 kg

DRUGS (6)
  1. XARELTO [Suspect]
     Active Substance: RIVAROXABAN
     Indication: ATRIAL FIBRILLATION
     Route: 048
     Dates: start: 20180620, end: 20180710
  2. XARELTO [Suspect]
     Active Substance: RIVAROXABAN
     Indication: EMBOLIC STROKE
     Route: 048
     Dates: start: 20180620, end: 20180710
  3. MIGLITOL. [Concomitant]
     Active Substance: MIGLITOL
     Route: 048
  4. TRAZENTA [Concomitant]
     Active Substance: LINAGLIPTIN
     Route: 048
  5. GLUFAST [Concomitant]
     Active Substance: MITIGLINIDE
     Route: 048
  6. VESICARE [Concomitant]
     Active Substance: SOLIFENACIN SUCCINATE
     Route: 048

REACTIONS (3)
  - Pneumonia aspiration [Fatal]
  - Pulmonary oedema [Unknown]
  - Embolic stroke [Fatal]

NARRATIVE: CASE EVENT DATE: 20180706
